FAERS Safety Report 24952401 (Version 2)
Quarter: 2025Q1

REPORT INFORMATION
  Report Type: Spontaneous
  Country: US (occurrence: US)
  Receive Date: 20250210
  Receipt Date: 20250225
  Transmission Date: 20250409
  Serious: No
  Sender: APELLIS PHARMACEUTICALS
  Company Number: US-APELLIS-2025-APL-0000659

PATIENT

DRUGS (3)
  1. SYFOVRE [Suspect]
     Active Substance: PEGCETACOPLAN
     Indication: Dry age-related macular degeneration
     Route: 031
     Dates: start: 20241007, end: 20241009
  2. SYFOVRE [Suspect]
     Active Substance: PEGCETACOPLAN
     Route: 065
  3. PREDNISOLONE ACETATE [Suspect]
     Active Substance: PREDNISOLONE ACETATE
     Indication: Dry age-related macular degeneration

REACTIONS (8)
  - Uveitis [Recovered/Resolved]
  - Crying [Unknown]
  - Blindness [Recovered/Resolved]
  - Intraocular pressure increased [Unknown]
  - Metamorphopsia [Unknown]
  - Hypotony of eye [Unknown]
  - Glaucoma [Unknown]
  - Agitation [Unknown]

NARRATIVE: CASE EVENT DATE: 20241009
